FAERS Safety Report 16270002 (Version 1)
Quarter: 2019Q2

REPORT INFORMATION
  Report Type: Spontaneous
  Country: US (occurrence: US)
  Receive Date: 20190502
  Receipt Date: 20190502
  Transmission Date: 20190711
  Serious: Yes (Death)
  Sender: FDA-Public Use
  Company Number: None

PATIENT
  Age: 84 Year
  Sex: Male
  Weight: 66.15 kg

DRUGS (13)
  1. PROCHLORPERZINE [Concomitant]
     Active Substance: PROCHLORPERAZINE
  2. PROSCAR [Concomitant]
     Active Substance: FINASTERIDE
  3. ACYCLOVIR. [Concomitant]
     Active Substance: ACYCLOVIR
  4. VENCLEXTA [Concomitant]
     Active Substance: VENETOCLAX
  5. JADENU [Suspect]
     Active Substance: DEFERASIROX
     Indication: CHRONIC MYELOID LEUKAEMIA
     Route: 048
     Dates: start: 20190313, end: 20190423
  6. JADENU [Suspect]
     Active Substance: DEFERASIROX
     Indication: CHRONIC MYELOID LEUKAEMIA
     Route: 048
     Dates: start: 20190313, end: 20190423
  7. FLOMAX [Concomitant]
     Active Substance: TAMSULOSIN HYDROCHLORIDE
  8. DIFLUCAN [Concomitant]
     Active Substance: FLUCONAZOLE
  9. MEGESTROL [Concomitant]
     Active Substance: MEGESTROL
  10. MELATONIN [Concomitant]
     Active Substance: MELATONIN
  11. PANTOPRAZOLE [Concomitant]
     Active Substance: PANTOPRAZOLE
  12. BENADRYL [Concomitant]
     Active Substance: DIPHENHYDRAMINE HYDROCHLORIDE
  13. LEVAQUIN [Concomitant]
     Active Substance: LEVOFLOXACIN

REACTIONS (1)
  - Death [None]

NARRATIVE: CASE EVENT DATE: 20190423
